FAERS Safety Report 23575460 (Version 1)
Quarter: 2024Q1

REPORT INFORMATION
  Report Type: Report from Study
  Country: IT (occurrence: IT)
  Receive Date: 20240228
  Receipt Date: 20240228
  Transmission Date: 20240410
  Serious: Yes (Other)
  Sender: FDA-Public Use
  Company Number: None

PATIENT
  Age: 43 Year
  Sex: Female

DRUGS (2)
  1. LETROZOLE [Suspect]
     Active Substance: LETROZOLE
     Indication: Breast cancer
     Dosage: 2.5 MG FOR 21 DAYS, LETROZOLO
     Route: 048
     Dates: start: 20230330, end: 20240102
  2. RIBOCICLIB [Suspect]
     Active Substance: RIBOCICLIB
     Indication: Breast cancer
     Dosage: 600 MG FOR 21 DAYS
     Route: 048
     Dates: start: 20230330, end: 20240102

REACTIONS (1)
  - Neutropenia [Not Recovered/Not Resolved]

NARRATIVE: CASE EVENT DATE: 20240102
